FAERS Safety Report 24284548 (Version 1)
Quarter: 2024Q3

REPORT INFORMATION
  Report Type: Spontaneous
  Country: JP (occurrence: JP)
  Receive Date: 20240905
  Receipt Date: 20240905
  Transmission Date: 20241016
  Serious: Yes (Death)
  Sender: JOHNSON AND JOHNSON
  Company Number: JP-JNJFOC-20240907465

PATIENT
  Age: 9 Decade
  Sex: Female

DRUGS (2)
  1. UPTRAVI [Suspect]
     Active Substance: SELEXIPAG
     Indication: Pulmonary hypertension
     Route: 048
     Dates: start: 202205
  2. UPTRAVI [Suspect]
     Active Substance: SELEXIPAG
     Dosage: END DATE://2024
     Route: 048

REACTIONS (1)
  - Pulmonary hypertension [Fatal]
